FAERS Safety Report 20436194 (Version 2)
Quarter: 2022Q1

REPORT INFORMATION
  Report Type: Spontaneous
  Country: US (occurrence: US)
  Receive Date: 20220207
  Receipt Date: 20220210
  Transmission Date: 20220423
  Serious: No
  Sender: FDA-Public Use
  Company Number: US-JNJFOC-20220146522

PATIENT
  Age: 34 Year
  Sex: Female

DRUGS (5)
  1. SPRAVATO [Suspect]
     Active Substance: ESKETAMINE
     Indication: Product used for unknown indication
     Dosage: 8 DOSES
     Dates: start: 20190910, end: 20191010
  2. SPRAVATO [Suspect]
     Active Substance: ESKETAMINE
     Dosage: 16 DOSES
     Dates: start: 20191015, end: 20200224
  3. SPRAVATO [Suspect]
     Active Substance: ESKETAMINE
     Dosage: 27 DOSES
     Dates: start: 20200309, end: 20201229
  4. SPRAVATO [Suspect]
     Active Substance: ESKETAMINE
     Dosage: 37 DOSES
     Dates: start: 20210107, end: 20211230
  5. SPRAVATO [Suspect]
     Active Substance: ESKETAMINE
     Dosage: RECENT DOSE
     Dates: start: 20220106, end: 20220106

REACTIONS (6)
  - Erythema [Unknown]
  - Chills [Unknown]
  - Blood pressure increased [Unknown]
  - Heart rate increased [Unknown]
  - Nausea [Unknown]
  - Hyperhidrosis [Unknown]

NARRATIVE: CASE EVENT DATE: 20220117
